FAERS Safety Report 14748085 (Version 4)
Quarter: 2018Q3

REPORT INFORMATION
  Report Type: Spontaneous
  Country: PT (occurrence: ES)
  Receive Date: 20180411
  Receipt Date: 20180925
  Transmission Date: 20181010
  Serious: Yes (Life-Threatening, Hospitalization, Other)
  Sender: FDA-Public Use
  Company Number: PT-SUNOVION-2018SUN001391

PATIENT

DRUGS (8)
  1. ESLICARBAZEPINE ACETATE [Suspect]
     Active Substance: ESLICARBAZEPINE ACETATE
     Indication: TRIGEMINAL NEURALGIA
     Dosage: 400 MG, QD
     Route: 065
     Dates: start: 201706
  2. PRIMPERAN [Concomitant]
     Active Substance: METOCLOPRAMIDE HYDROCHLORIDE
     Indication: ANALGESIC THERAPY
     Dosage: UNKNOWN
  3. NOLOTIL [Concomitant]
     Indication: ANALGESIC THERAPY
     Dosage: UNK
  4. CARBAMAZEPINE. [Suspect]
     Active Substance: CARBAMAZEPINE
     Indication: TRIGEMINAL NEURALGIA
     Dosage: 200 MG, Q12H
     Route: 065
     Dates: end: 20170607
  5. LACOSAMIDE. [Suspect]
     Active Substance: LACOSAMIDE
     Indication: TRIGEMINAL NEURALGIA
     Dosage: 100 MG, Q12H
     Route: 042
     Dates: start: 201706
  6. CARBAMAZEPINA NORMON [Suspect]
     Active Substance: CARBAMAZEPINE
     Indication: TRIGEMINAL NEURALGIA
     Dosage: 200 MG, QD THEN DESCENDING REGIME
     Route: 048
     Dates: start: 201706, end: 2017
  7. TRAMADOL. [Concomitant]
     Active Substance: TRAMADOL
     Indication: ANALGESIC THERAPY
     Dosage: UNKNOWN
  8. ENALAPRIL [Concomitant]
     Active Substance: ENALAPRIL
     Indication: TRIGEMINAL NEURALGIA
     Dosage: 5 MG, Q12H

REACTIONS (6)
  - Atrioventricular block complete [Unknown]
  - Bradycardia [Unknown]
  - Drug intolerance [Unknown]
  - Cardio-respiratory arrest [Unknown]
  - Loss of consciousness [Unknown]
  - Off label use [Unknown]

NARRATIVE: CASE EVENT DATE: 20170612
